FAERS Safety Report 13567726 (Version 1)
Quarter: 2017Q2

REPORT INFORMATION
  Report Type: Spontaneous
  Country: PE (occurrence: PE)
  Receive Date: 20170522
  Receipt Date: 20170522
  Transmission Date: 20170830
  Serious: Yes (Death, Life-Threatening, Other)
  Sender: FDA-Public Use
  Company Number: PE-009507513-1705PER008676

PATIENT

DRUGS (1)
  1. KEYTRUDA [Suspect]
     Active Substance: PEMBROLIZUMAB
     Indication: NEOPLASM
     Dosage: UNK

REACTIONS (2)
  - Pulmonary haemorrhage [Fatal]
  - Malignant neoplasm progression [Fatal]
